FAERS Safety Report 13346839 (Version 1)
Quarter: 2017Q1

REPORT INFORMATION
  Report Type: Spontaneous
  Country: FR (occurrence: FR)
  Receive Date: 20170317
  Receipt Date: 20170317
  Transmission Date: 20170428
  Serious: Yes (Death)
  Sender: FDA-Public Use
  Company Number: FR-PFIZER INC-2017112363

PATIENT
  Age: 64 Year
  Sex: Male

DRUGS (3)
  1. FLUOROURACILE ACCORD [Suspect]
     Active Substance: FLUOROURACIL
     Indication: OESOPHAGEAL ADENOCARCINOMA METASTATIC
     Dosage: 800 MG, CYCLIC (ONCE  PER CYCLE)
     Route: 042
     Dates: start: 20151204, end: 20151225
  2. OXALIPLATINE ACCORD [Suspect]
     Active Substance: OXALIPLATIN
     Indication: OESOPHAGEAL ADENOCARCINOMA METASTATIC
     Dosage: 150 MG, CYCLIC (ONCE PER CYCLE)
     Route: 042
     Dates: start: 20151204, end: 20151225
  3. DOCETAXEL. [Suspect]
     Active Substance: DOCETAXEL
     Indication: OESOPHAGEAL ADENOCARCINOMA METASTATIC
     Dosage: 100 MG, CYCLIC (ONCE PER CYCLE)
     Route: 042
     Dates: start: 20151204, end: 20151225

REACTIONS (5)
  - Pleural effusion [Fatal]
  - Acute respiratory failure [Fatal]
  - Erythema [Fatal]
  - Hypertension [Fatal]
  - Tachycardia [Fatal]

NARRATIVE: CASE EVENT DATE: 20151227
